FAERS Safety Report 22304809 (Version 1)
Quarter: 2023Q2

REPORT INFORMATION
  Report Type: Spontaneous
  Country: US (occurrence: US)
  Receive Date: 20230510
  Receipt Date: 20230510
  Transmission Date: 20230721
  Serious: No
  Sender: FDA-Public Use
  Company Number: US-ABBVIE-4755223

PATIENT
  Sex: Female

DRUGS (1)
  1. LUPRON [Suspect]
     Active Substance: LEUPROLIDE ACETATE
     Indication: Uterine leiomyoma
     Dosage: STRENGTH 3.75 MG?FOR 6 MONTHS
     Route: 030
     Dates: start: 2003, end: 2003

REACTIONS (13)
  - Hair disorder [Not Recovered/Not Resolved]
  - Alopecia [Recovered/Resolved]
  - Nerve compression [Not Recovered/Not Resolved]
  - Eye injury [Not Recovered/Not Resolved]
  - Fungal skin infection [Not Recovered/Not Resolved]
  - Onychoclasis [Not Recovered/Not Resolved]
  - Autoimmune disorder [Not Recovered/Not Resolved]
  - Pancreatic disorder [Not Recovered/Not Resolved]
  - Renal injury [Not Recovered/Not Resolved]
  - Tooth injury [Not Recovered/Not Resolved]
  - Liver disorder [Not Recovered/Not Resolved]
  - Nerve injury [Not Recovered/Not Resolved]
  - Colon injury [Not Recovered/Not Resolved]

NARRATIVE: CASE EVENT DATE: 20030101
